FAERS Safety Report 4913943-7 (Version None)
Quarter: 2006Q1

REPORT INFORMATION
  Report Type: 
  Country: None (occurrence: None)
  Receive Date: 20060113
  Receipt Date: 20051104
  Transmission Date: 20060701
  Serious: No
  Sender: FDA-Public Use
  Company Number: 2005SP003863

PATIENT
  Age: 52 Year
  Sex: Female
  Weight: 72.5755 kg

DRUGS (8)
  1. LUNESTA [Suspect]
     Indication: INSOMNIA
     Dosage: SEE IMAGE
     Route: 048
     Dates: start: 20050101, end: 20050101
  2. LUNESTA [Suspect]
     Indication: INSOMNIA
     Dosage: SEE IMAGE
     Route: 048
     Dates: start: 20051103, end: 20050101
  3. TENORMIN [Concomitant]
  4. CAPOTEN [Concomitant]
  5. FEMHRT [Concomitant]
  6. PROZAC [Concomitant]
  7. PRILOSEC [Concomitant]
  8. XANAX [Concomitant]

REACTIONS (6)
  - AGITATION [None]
  - DRUG INEFFECTIVE [None]
  - DYSGEUSIA [None]
  - HANGOVER [None]
  - HYPERHIDROSIS [None]
  - INSOMNIA [None]
